FAERS Safety Report 23737280 (Version 3)
Quarter: 2024Q3

REPORT INFORMATION
  Report Type: Spontaneous
  Country: US (occurrence: US)
  Receive Date: 20240412
  Receipt Date: 20240910
  Transmission Date: 20241016
  Serious: Yes (Other)
  Sender: BAYER
  Company Number: US-BAYER-2024A049865

PATIENT
  Age: 11 Year
  Sex: Male

DRUGS (2)
  1. KOVALTRY [Suspect]
     Active Substance: ANTIHEMOPHILIC FACTOR, HUMAN RECOMBINANT
     Indication: Haemorrhage
     Dosage: INFUSE 1850 UNITS (+/-10%) AS DIRECTED
     Route: 042
  2. KOVALTRY [Suspect]
     Active Substance: ANTIHEMOPHILIC FACTOR, HUMAN RECOMBINANT
     Indication: Haemorrhage
     Dosage: KOVALTRY 1850IU: INFUSE~ 1906 UNITS PRN

REACTIONS (4)
  - Limb injury [None]
  - Traumatic haemorrhage [Recovered/Resolved]
  - Contusion [None]
  - Injury [None]

NARRATIVE: CASE EVENT DATE: 20240321
